FAERS Safety Report 15091389 (Version 1)
Quarter: 2018Q2

REPORT INFORMATION
  Report Type: Spontaneous
  Country: US (occurrence: US)
  Receive Date: 20180629
  Receipt Date: 20180629
  Transmission Date: 20180711
  Serious: Yes (Hospitalization, Other)
  Sender: FDA-Public Use
  Company Number: US-PFIZER INC-2018261764

PATIENT
  Age: 36 Year
  Sex: Male

DRUGS (23)
  1. ZOLOFT [Suspect]
     Active Substance: SERTRALINE HYDROCHLORIDE
     Dosage: UNK
  2. ARIPIPRAZOLE. [Suspect]
     Active Substance: ARIPIPRAZOLE
     Dosage: 20 MG, DAILY
     Route: 048
  3. IBUPROFEN. [Concomitant]
     Active Substance: IBUPROFEN
  4. ABILIFY [Suspect]
     Active Substance: ARIPIPRAZOLE
     Indication: ANXIETY
  5. VITAMIN E [Concomitant]
     Active Substance: .ALPHA.-TOCOPHEROL
  6. CLOZAPINE. [Suspect]
     Active Substance: CLOZAPINE
     Dosage: 350 MG, DAILY 25 MG MORNING
     Route: 065
  7. DEPAKOTE [Suspect]
     Active Substance: DIVALPROEX SODIUM
     Dosage: 80 MG, DAILY
     Route: 065
  8. DIVALPROEX [Concomitant]
     Active Substance: DIVALPROEX SODIUM
     Dosage: UNK
  9. ABILIFY [Suspect]
     Active Substance: ARIPIPRAZOLE
     Indication: PSYCHOTIC DISORDER
     Dosage: 20 MG, DAILY
     Route: 048
     Dates: start: 200406
  10. CLOZAPINE. [Suspect]
     Active Substance: CLOZAPINE
     Dosage: 100 MG, DAILY
     Route: 048
  11. ABILIFY [Suspect]
     Active Substance: ARIPIPRAZOLE
     Indication: IRRITABILITY
  12. ABILIFY [Suspect]
     Active Substance: ARIPIPRAZOLE
     Indication: PERSONALITY DISORDER
  13. DEPAKOTE [Suspect]
     Active Substance: DIVALPROEX SODIUM
     Dosage: 100 MG, DAILY
     Route: 065
  14. ABILIFY [Suspect]
     Active Substance: ARIPIPRAZOLE
     Indication: MAJOR DEPRESSION
     Dosage: 10 MG, DAILY
     Route: 048
     Dates: start: 20030212
  15. ABILIFY [Suspect]
     Active Substance: ARIPIPRAZOLE
     Indication: AGITATION
  16. CLOZAPINE. [Suspect]
     Active Substance: CLOZAPINE
     Dosage: 300 MG, DAILY
     Route: 048
  17. RANITIDINE. [Concomitant]
     Active Substance: RANITIDINE
  18. ZOLOFT [Suspect]
     Active Substance: SERTRALINE HYDROCHLORIDE
     Dosage: 100 MG, DAILY
  19. ABILIFY [Suspect]
     Active Substance: ARIPIPRAZOLE
     Indication: SOCIAL ANXIETY DISORDER
  20. LORATADINE. [Concomitant]
     Active Substance: LORATADINE
  21. SERTRALINE [Concomitant]
     Active Substance: SERTRALINE HYDROCHLORIDE
  22. ABILIFY [Suspect]
     Active Substance: ARIPIPRAZOLE
     Indication: SCHIZOPHRENIA
     Dosage: UNK
     Route: 065
     Dates: start: 200306, end: 201112
  23. CLOZAPINE. [Suspect]
     Active Substance: CLOZAPINE
     Dosage: 400 MG, DAILY
     Route: 048

REACTIONS (53)
  - Ejaculation delayed [Unknown]
  - Hyperventilation [Unknown]
  - Sensory loss [Unknown]
  - Mood swings [Unknown]
  - Blunted affect [Unknown]
  - Psychiatric symptom [Unknown]
  - Feeling abnormal [Unknown]
  - Libido decreased [Unknown]
  - Anger [Unknown]
  - Abdominal discomfort [Unknown]
  - Restlessness [Unknown]
  - Tremor [Unknown]
  - Loss of employment [Unknown]
  - Suicidal ideation [Unknown]
  - Flatulence [Unknown]
  - Muscle spasms [Unknown]
  - Compulsive shopping [Unknown]
  - Energy increased [Unknown]
  - Tearfulness [Unknown]
  - Dyskinesia [Unknown]
  - Somnolence [Unknown]
  - Nausea [Unknown]
  - Tachycardia [Unknown]
  - Mental disorder [Unknown]
  - Intrusive thoughts [Unknown]
  - Depressed mood [Unknown]
  - Hypoaesthesia [Unknown]
  - Blood pressure abnormal [Unknown]
  - Delusion [Unknown]
  - Economic problem [Unknown]
  - Compulsive sexual behaviour [Unknown]
  - Sleep disorder [Unknown]
  - Drooling [Unknown]
  - Orthostatic hypotension [Unknown]
  - Weight increased [Unknown]
  - Condition aggravated [Unknown]
  - Emotional disorder [Unknown]
  - Jaw disorder [Unknown]
  - Eating disorder [Unknown]
  - Salivary hypersecretion [Unknown]
  - Fatigue [Unknown]
  - Sedation [Unknown]
  - Dizziness [Unknown]
  - Sluggishness [Unknown]
  - Hypersexuality [Unknown]
  - Agitation [Unknown]
  - Tardive dyskinesia [Unknown]
  - Suicide attempt [Unknown]
  - Emotional distress [Unknown]
  - Ear infection [Unknown]
  - Sexual dysfunction [Unknown]
  - Dyspepsia [Unknown]
  - Product use in unapproved indication [Unknown]

NARRATIVE: CASE EVENT DATE: 200306
